FAERS Safety Report 12857468 (Version 1)
Quarter: 2016Q4

REPORT INFORMATION
  Report Type: Spontaneous
  Country: NL (occurrence: NL)
  Receive Date: 20161018
  Receipt Date: 20161018
  Transmission Date: 20170207
  Serious: Yes (Other)
  Sender: FDA-Public Use
  Company Number: NL-TEVA-699957ACC

PATIENT
  Age: 71 Year
  Sex: Male
  Weight: 114 kg

DRUGS (3)
  1. ADALIMUMAB [Interacting]
     Active Substance: ADALIMUMAB
     Indication: PSORIASIS
     Dosage: 40 MG ONCE PER TWO WEEKS. ONE-OFF LOADING DOSE 80 MG
     Route: 058
     Dates: start: 20150810, end: 20160818
  2. METHOTREXATE DINATRIUM [Suspect]
     Active Substance: METHOTREXATE
     Indication: PSORIASIS
     Dosage: 1 TIME PER WEEK 1 PIECE(S)
     Route: 048
     Dates: start: 201508
  3. ETORICOXIB TABLET FO  60MG [Concomitant]
     Dosage: , EXTRA INFO: IF NECESSARY
     Route: 048

REACTIONS (2)
  - Drug interaction [Recovering/Resolving]
  - Polyneuropathy [Recovering/Resolving]

NARRATIVE: CASE EVENT DATE: 201510
